FAERS Safety Report 13990681 (Version 1)
Quarter: 2017Q3

REPORT INFORMATION
  Report Type: Spontaneous
  Country: US (occurrence: US)
  Receive Date: 20170920
  Receipt Date: 20170920
  Transmission Date: 20171128
  Serious: No
  Sender: FDA-Public Use
  Company Number: PHEH2017US029531

PATIENT
  Sex: Female

DRUGS (1)
  1. TIZANIDINE SANDOZ [Suspect]
     Active Substance: TIZANIDINE
     Indication: PRODUCT USED FOR UNKNOWN INDICATION
     Dosage: UNK
     Route: 065

REACTIONS (3)
  - Tardive dyskinesia [Unknown]
  - Motor dysfunction [Unknown]
  - Tremor [Unknown]
